FAERS Safety Report 16816615 (Version 3)
Quarter: 2019Q4

REPORT INFORMATION
  Report Type: Spontaneous
  Country: RU (occurrence: RU)
  Receive Date: 20190917
  Receipt Date: 20191107
  Transmission Date: 20200122
  Serious: Yes (Hospitalization, Other)
  Sender: FDA-Public Use
  Company Number: RU-JNJFOC-20190910110

PATIENT
  Age: 57 Year
  Sex: Male

DRUGS (5)
  1. RIVAROXABAN [Suspect]
     Active Substance: RIVAROXABAN
     Indication: PULMONARY EMBOLISM
     Dosage: 20 MG, QD
     Route: 048
     Dates: start: 201907, end: 201908
  2. RIVAROXABAN [Suspect]
     Active Substance: RIVAROXABAN
     Indication: DEEP VEIN THROMBOSIS
     Route: 048
  3. IRON [Concomitant]
     Active Substance: IRON
     Route: 048
  4. VANCOMYCIN [Concomitant]
     Active Substance: VANCOMYCIN
     Route: 048
  5. LEVOFLOXACIN. [Concomitant]
     Active Substance: LEVOFLOXACIN
     Route: 048

REACTIONS (6)
  - Deep vein thrombosis [Not Recovered/Not Resolved]
  - Renal vein thrombosis [Unknown]
  - Cough [Unknown]
  - Pulmonary embolism [Unknown]
  - Dyspnoea [Unknown]
  - Oedema peripheral [Unknown]

NARRATIVE: CASE EVENT DATE: 201907
